FAERS Safety Report 9680224 (Version 1)
Quarter: 2013Q4

REPORT INFORMATION
  Report Type: Spontaneous
  Country: US (occurrence: US)
  Receive Date: 20131111
  Receipt Date: 20131111
  Transmission Date: 20140711
  Serious: No
  Sender: FDA-Public Use
  Company Number: US-BIOGENIDEC-2013BI106548

PATIENT
  Sex: Female

DRUGS (1)
  1. TYSABRI [Suspect]
     Indication: MULTIPLE SCLEROSIS
     Route: 042
     Dates: start: 20120726

REACTIONS (20)
  - Pain [Unknown]
  - Muscle spasms [Unknown]
  - Hypoaesthesia [Unknown]
  - Nervous system disorder [Unknown]
  - Constipation [Unknown]
  - Memory impairment [Unknown]
  - Depressed mood [Unknown]
  - Dyslexia [Unknown]
  - Ligament sprain [Unknown]
  - Musculoskeletal disorder [Unknown]
  - Back disorder [Unknown]
  - Spinal disorder [Unknown]
  - Temporomandibular joint syndrome [Unknown]
  - Fatigue [Unknown]
  - Judgement impaired [Unknown]
  - Anger [Unknown]
  - Road traffic accident [Recovered/Resolved]
  - Foot fracture [Unknown]
  - Facial bones fracture [Unknown]
  - Hypotension [Unknown]
